FAERS Safety Report 24453507 (Version 2)
Quarter: 2024Q4

REPORT INFORMATION
  Report Type: Report from Study
  Country: US (occurrence: US)
  Receive Date: 20241017
  Receipt Date: 20241018
  Transmission Date: 20250115
  Serious: No
  Sender: ROCHE
  Company Number: US-ROCHE-3083785

PATIENT
  Age: 31 Year
  Sex: Male

DRUGS (1)
  1. RITUXAN [Suspect]
     Active Substance: RITUXIMAB
     Indication: Systemic lupus erythematosus
     Dosage: 2 DOSES THEN EVERY 6 MONTH?17/MAY/2021, 23/APR/2021, 19/APR/2022, 17/JUN/2022, 31/MAR/2024
     Route: 041
     Dates: start: 20220419

REACTIONS (2)
  - Off label use [Unknown]
  - No adverse event [Unknown]
